FAERS Safety Report 18689774 (Version 1)
Quarter: 2020Q4

REPORT INFORMATION
  Report Type: Spontaneous
  Country: US (occurrence: US)
  Receive Date: 20201231
  Receipt Date: 20201231
  Transmission Date: 20210114
  Serious: Yes (Other)
  Sender: FDA-Public Use
  Company Number: US-ELI_LILLY_AND_COMPANY-US202012014436

PATIENT
  Sex: Female

DRUGS (5)
  1. HUMULIN N [Suspect]
     Active Substance: INSULIN HUMAN
     Indication: DIABETES MELLITUS
     Dosage: 11 U, EACH MORNING
     Route: 058
     Dates: start: 2016
  2. METFORMIN [Concomitant]
     Active Substance: METFORMIN HYDROCHLORIDE
     Indication: DIABETES MELLITUS
  3. HUMULIN N [Suspect]
     Active Substance: INSULIN HUMAN
     Dosage: 11 U, EACH MORNING
     Route: 058
  4. HUMULIN N [Suspect]
     Active Substance: INSULIN HUMAN
     Dosage: 22 U, EACH EVENING
     Route: 058
  5. HUMULIN N [Suspect]
     Active Substance: INSULIN HUMAN
     Dosage: 22 U, EACH EVENING
     Route: 058
     Dates: start: 2016

REACTIONS (5)
  - Pre-eclampsia [Unknown]
  - Gestational hypertension [Unknown]
  - Maternal exposure during pregnancy [Unknown]
  - Maternal exposure during breast feeding [Unknown]
  - Memory impairment [Unknown]
